FAERS Safety Report 7559604-X (Version None)
Quarter: 2011Q2

REPORT INFORMATION
  Report Type: 
  Country: None (occurrence: None)
  Receive Date: 20110621
  Receipt Date: 20110615
  Transmission Date: 20111010
  Serious: Yes (Death)
  Sender: FDA-Public Use
  Company Number: AR-GENZYME-CERZ-1002117

PATIENT
  Age: 77 Year
  Sex: Male

DRUGS (1)
  1. CEREZYME [Suspect]
     Dosage: 60 U/KG, UNK
     Route: 042

REACTIONS (2)
  - HALLUCINATION, VISUAL [None]
  - DEATH [None]
